FAERS Safety Report 9551620 (Version 1)
Quarter: 2013Q3

REPORT INFORMATION
  Report Type: Spontaneous
  Country: US (occurrence: US)
  Receive Date: 20130925
  Receipt Date: 20130925
  Transmission Date: 20140515
  Serious: No
  Sender: FDA-Public Use
  Company Number: US-009507513-1309USA009270

PATIENT
  Age: 43 Year
  Sex: Female

DRUGS (2)
  1. NUVARING [Suspect]
     Indication: CONTRACEPTION
     Dosage: UNK, 1 RING FOR 3 WEEKS
     Route: 067
     Dates: start: 1992
  2. NAPROSYN [Concomitant]
     Indication: BACK DISORDER
     Dosage: UNK

REACTIONS (4)
  - Breast discomfort [Unknown]
  - Breast tenderness [Unknown]
  - Incorrect dose administered [Unknown]
  - Overdose [Unknown]
